FAERS Safety Report 9695618 (Version 1)
Quarter: 2013Q4

REPORT INFORMATION
  Report Type: Spontaneous
  Country: US (occurrence: US)
  Receive Date: 20131119
  Receipt Date: 20131119
  Transmission Date: 20140711
  Serious: No
  Sender: FDA-Public Use
  Company Number: US-009507513-1311USA005384

PATIENT
  Sex: Male

DRUGS (1)
  1. AZASITE [Suspect]
     Indication: EYE INFECTION
     Dosage: ONE DROP IN EACH EYE TWICE A DAY FOR FIRST TWO DAYS, THEN ONE DROP IN EACH EYE FOR 30 DAYS
     Route: 031
     Dates: start: 20131107

REACTIONS (2)
  - Drug prescribing error [Unknown]
  - Product packaging quantity issue [Unknown]
